FAERS Safety Report 9482453 (Version 1)
Quarter: 2013Q3

REPORT INFORMATION
  Report Type: Spontaneous
  Country: FR (occurrence: FR)
  Receive Date: 20130828
  Receipt Date: 20130828
  Transmission Date: 20140515
  Serious: Yes (Hospitalization)
  Sender: FDA-Public Use
  Company Number: FR-PFIZER INC-2013242052

PATIENT
  Age: 73 Year
  Sex: Male

DRUGS (4)
  1. FLUOROURACILE PFIZER [Suspect]
     Indication: COLORECTAL ADENOCARCINOMA
     Dosage: 772 MG, SINGLE (FIRST COURSE OF 772 MG WITH DIFFUSER OF 4632 MG)
     Route: 042
     Dates: start: 20130704, end: 20130704
  2. FLUOROURACILE PFIZER [Suspect]
     Dosage: 4632 MG, UNK (FIRST COURSE OF 772 MG WITH DIFFUSER OF 4632 MG)
     Route: 041
     Dates: start: 20130704, end: 20130704
  3. OXALIPLATIN ACCORD [Suspect]
     Indication: COLORECTAL ADENOCARCINOMA
     Dosage: 164 MG, SINGLE (FIRST COURSE)
     Route: 042
     Dates: start: 20130704, end: 20130704
  4. CALCIUM FOLINATE ZENTIVA [Suspect]
     Indication: COLORECTAL ADENOCARCINOMA
     Dosage: 772 MG, SINGLE (FIRST COURSE)
     Route: 042
     Dates: start: 20130704, end: 20130704

REACTIONS (1)
  - Myocardial infarction [Recovered/Resolved]
